FAERS Safety Report 24664196 (Version 2)
Quarter: 2024Q4

REPORT INFORMATION
  Report Type: Spontaneous
  Country: GB (occurrence: GB)
  Receive Date: 20241126
  Receipt Date: 20241128
  Transmission Date: 20250115
  Serious: Yes (Other)
  Sender: ABBVIE
  Company Number: None

PATIENT
  Sex: Female

DRUGS (2)
  1. ADALIMUMAB [Suspect]
     Active Substance: ADALIMUMAB
     Indication: Psoriatic arthropathy
     Dosage: 60 OD
     Route: 058
     Dates: start: 20240815, end: 20241031
  2. SERTRALINE [Concomitant]
     Active Substance: SERTRALINE HYDROCHLORIDE
     Indication: Depression
     Dates: end: 20241105

REACTIONS (3)
  - Drug-induced liver injury [Not Recovered/Not Resolved]
  - Pruritus [Unknown]
  - Eructation [Unknown]

NARRATIVE: CASE EVENT DATE: 20241001
